FAERS Safety Report 7717911-1 (Version None)
Quarter: 2011Q3

REPORT INFORMATION
  Report Type: 
  Country: None (occurrence: None)
  Receive Date: 20110830
  Receipt Date: 20110824
  Transmission Date: 20111222
  Serious: Yes (Life-Threatening, Other)
  Sender: FDA-Public Use
  Company Number: KR-ROXANE LABORATORIES, INC.-2011-RO-01184RO

PATIENT
  Age: 54 Year
  Sex: Male

DRUGS (3)
  1. ATENOLOL [Suspect]
     Indication: ATRIAL FIBRILLATION
     Dosage: 25 MG
  2. FLECAINIDE ACETATE [Suspect]
     Indication: ATRIAL FIBRILLATION
     Dosage: 200 MG
  3. PROPRANOLOL [Suspect]
     Indication: ATRIAL FIBRILLATION
     Dosage: 120 MG

REACTIONS (4)
  - BRADYCARDIA [None]
  - ATRIAL FIBRILLATION [None]
  - VENTRICULAR TACHYCARDIA [None]
  - LONG QT SYNDROME [None]
